FAERS Safety Report 20567623 (Version 2)
Quarter: 2022Q2

REPORT INFORMATION
  Report Type: Spontaneous
  Country: US (occurrence: US)
  Receive Date: 20220308
  Receipt Date: 20220517
  Transmission Date: 20220721
  Serious: No
  Sender: FDA-Public Use
  Company Number: US-PFIZER INC-202200229789

PATIENT
  Age: 60 Year
  Sex: Female

DRUGS (1)
  1. XELJANZ XR [Suspect]
     Active Substance: TOFACITINIB CITRATE
     Indication: Rheumatoid arthritis
     Dosage: 11 MG, 1X/DAY
     Route: 048
     Dates: start: 202103

REACTIONS (5)
  - Rash macular [Unknown]
  - Alopecia [Recovered/Resolved]
  - Madarosis [Recovered/Resolved]
  - Pain [Not Recovered/Not Resolved]
  - Therapeutic response unexpected [Unknown]
